FAERS Safety Report 6170513-3 (Version None)
Quarter: 2009Q2

REPORT INFORMATION
  Report Type: 
  Country: None (occurrence: None)
  Receive Date: 20090427
  Receipt Date: 20090427
  Transmission Date: 20091009
  Serious: No
  Sender: FDA-Public Use
  Company Number: None

PATIENT
  Age: 21 Year
  Sex: Female
  Weight: 54 kg

DRUGS (5)
  1. HYDROMORPHONE HCL [Suspect]
     Indication: PAIN
     Dosage: 2.4 MG IV IN 2 HRS
     Route: 042
     Dates: start: 20090113
  2. HEPARIN [Concomitant]
  3. CEFAZOLIN [Concomitant]
  4. DOCUSATE [Concomitant]
  5. SENNA [Concomitant]

REACTIONS (2)
  - LETHARGY [None]
  - SOMNOLENCE [None]
